FAERS Safety Report 25967323 (Version 2)
Quarter: 2025Q4

REPORT INFORMATION
  Report Type: Spontaneous
  Country: JP (occurrence: JP)
  Receive Date: 20251028
  Receipt Date: 20251105
  Transmission Date: 20260118
  Serious: Yes (Other)
  Sender: ACCORD
  Company Number: JP-MLMSERVICE-20251009-PI668521-00140-7

PATIENT
  Age: 11 Year
  Sex: Male
  Weight: 19.2 kg

DRUGS (9)
  1. ETOPOSIDE [Suspect]
     Active Substance: ETOPOSIDE
     Indication: Juvenile chronic myelomonocytic leukaemia
     Route: 042
     Dates: start: 201409
  2. CYTARABINE [Suspect]
     Active Substance: CYTARABINE
     Indication: Juvenile chronic myelomonocytic leukaemia
     Route: 042
     Dates: start: 201405, end: 201405
  3. PIRARUBICIN [Suspect]
     Active Substance: PIRARUBICIN
     Indication: Juvenile chronic myelomonocytic leukaemia
     Route: 042
     Dates: start: 201405, end: 201405
  4. CYCLOPHOSPHAMIDE [Concomitant]
     Active Substance: CYCLOPHOSPHAMIDE
     Indication: Prophylaxis against graft versus host disease
  5. TACROLIMUS [Concomitant]
     Active Substance: TACROLIMUS
     Indication: Prophylaxis against graft versus host disease
  6. MYCOPHENOLATE MOFETIL [Concomitant]
     Active Substance: MYCOPHENOLATE MOFETIL
     Indication: Prophylaxis against graft versus host disease
  7. ETOPOSIDE [Suspect]
     Active Substance: ETOPOSIDE
     Indication: Juvenile chronic myelomonocytic leukaemia
     Route: 042
     Dates: start: 201405, end: 201405
  8. CYTARABINE [Suspect]
     Active Substance: CYTARABINE
     Indication: Juvenile chronic myelomonocytic leukaemia
     Route: 042
     Dates: start: 201406, end: 201406
  9. PIRARUBICIN [Suspect]
     Active Substance: PIRARUBICIN
     Indication: Juvenile chronic myelomonocytic leukaemia
     Route: 042
     Dates: start: 201406, end: 201406

REACTIONS (1)
  - Pulmonary arterial hypertension [Recovering/Resolving]

NARRATIVE: CASE EVENT DATE: 20240901
